FAERS Safety Report 15437148 (Version 4)
Quarter: 2018Q4

REPORT INFORMATION
  Report Type: Report from Study
  Country: US (occurrence: US)
  Receive Date: 20180927
  Receipt Date: 20181213
  Transmission Date: 20190204
  Serious: Yes (Other)
  Sender: FDA-Public Use
  Company Number: US-CLOVIS ONCOLOGY-CLO-2018-001061

PATIENT
  Age: 79 Year
  Sex: Female

DRUGS (5)
  1. RUBRACA [Suspect]
     Active Substance: RUCAPARIB CAMSYLATE
     Indication: OVARIAN CANCER
     Dosage: 200 MG, QD
     Route: 048
     Dates: start: 20180801, end: 201808
  2. RUBRACA [Suspect]
     Active Substance: RUCAPARIB CAMSYLATE
     Dosage: 400 MG, QD
     Route: 048
     Dates: start: 20180816
  3. RUBRACA [Suspect]
     Active Substance: RUCAPARIB CAMSYLATE
     Dosage: 400 MG, BID
     Route: 048
     Dates: start: 20180801, end: 20181102
  4. RUBRACA [Suspect]
     Active Substance: RUCAPARIB CAMSYLATE
     Dosage: TITRATION DOSE, QD
     Route: 048
     Dates: start: 20180726
  5. RUBRACA [Suspect]
     Active Substance: RUCAPARIB CAMSYLATE
     Dosage: 400 MG, BID
     Route: 048

REACTIONS (27)
  - Herpes ophthalmic [Not Recovered/Not Resolved]
  - Dysphonia [Unknown]
  - Urinary tract infection [Recovered/Resolved]
  - Genitourinary symptom [Recovered/Resolved]
  - Hypophagia [Unknown]
  - Cough [Unknown]
  - Dizziness [Recovering/Resolving]
  - Cystitis [Recovered/Resolved]
  - Balance disorder [Recovering/Resolving]
  - Dysuria [Unknown]
  - Abdominal pain [Recovering/Resolving]
  - Fatigue [Recovering/Resolving]
  - Dyspnoea [Recovering/Resolving]
  - Thrombocytopenia [Unknown]
  - Visual impairment [Recovering/Resolving]
  - Urinary incontinence [Unknown]
  - Pollakiuria [Unknown]
  - Abdominal distension [Unknown]
  - Poor quality sleep [Unknown]
  - Red cell distribution width increased [Unknown]
  - Nocturia [Unknown]
  - Decreased appetite [Recovering/Resolving]
  - Hypokalaemia [Unknown]
  - Micturition urgency [Unknown]
  - Early satiety [Unknown]
  - Oropharyngeal pain [Unknown]
  - Abdominal tenderness [Unknown]

NARRATIVE: CASE EVENT DATE: 2018
